FAERS Safety Report 10201775 (Version 1)
Quarter: 2014Q2

REPORT INFORMATION
  Report Type: Spontaneous
  Country: US (occurrence: US)
  Receive Date: 20140528
  Receipt Date: 20140528
  Transmission Date: 20141212
  Serious: No
  Sender: FDA-Public Use
  Company Number: US-BRISTOL-MYERS SQUIBB COMPANY-19132158

PATIENT
  Age: 59 Year
  Sex: Female

DRUGS (1)
  1. GLUCOPHAGE TABS 500 MG [Suspect]
     Indication: BLOOD GLUCOSE INCREASED
     Dosage: SHE ONLY TOOK ONE TABLET
     Route: 048
     Dates: start: 2010

REACTIONS (1)
  - Diarrhoea [Recovered/Resolved]
